FAERS Safety Report 6039506-0 (Version None)
Quarter: 2009Q1

REPORT INFORMATION
  Report Type: 
  Country: None (occurrence: None)
  Receive Date: 20090114
  Receipt Date: 20090103
  Transmission Date: 20090719
  Serious: Yes (Hospitalization)
  Sender: FDA-Public Use
  Company Number: 237864K07USA

PATIENT
  Age: 48 Year
  Sex: Female

DRUGS (12)
  1. REBIF [Suspect]
     Indication: MULTIPLE SCLEROSIS
     Dosage: 33 MCG, 3 IN 1 WEEKS, SUBCUTANEOUS; 44,; 22 MCG, 3 IN 1 WEEKS, SUBCUTANEOUS
     Route: 058
     Dates: start: 20070809, end: 20071107
  2. REBIF [Suspect]
     Indication: MULTIPLE SCLEROSIS
     Dosage: 33 MCG, 3 IN 1 WEEKS, SUBCUTANEOUS; 44,; 22 MCG, 3 IN 1 WEEKS, SUBCUTANEOUS
     Route: 058
     Dates: start: 20071204, end: 20071212
  3. REBIF [Suspect]
     Indication: MULTIPLE SCLEROSIS
     Dosage: 33 MCG, 3 IN 1 WEEKS, SUBCUTANEOUS; 44,; 22 MCG, 3 IN 1 WEEKS, SUBCUTANEOUS
     Route: 058
     Dates: start: 20071214, end: 20080101
  4. REBIF [Suspect]
     Indication: MULTIPLE SCLEROSIS
     Dosage: 33 MCG, 3 IN 1 WEEKS, SUBCUTANEOUS; 44,; 22 MCG, 3 IN 1 WEEKS, SUBCUTANEOUS
     Route: 058
     Dates: start: 20080101, end: 20080314
  5. REBIF [Suspect]
     Indication: MULTIPLE SCLEROSIS
     Dosage: 33 MCG, 3 IN 1 WEEKS, SUBCUTANEOUS; 44,; 22 MCG, 3 IN 1 WEEKS, SUBCUTANEOUS
     Route: 058
     Dates: start: 20080101, end: 20080701
  6. TRILEPTAL [Concomitant]
  7. SEROQUEL [Concomitant]
  8. ZOLOFT [Concomitant]
  9. INSULIN (INSULIN /00030501/) [Concomitant]
  10. ANTIHYPERTENSIVE (ANTIHYPERTENSIVES) [Concomitant]
  11. PAIN INJECTION (ANALGESICS) [Concomitant]
  12. OXYGEN (OXYGEN) [Concomitant]

REACTIONS (7)
  - DEPRESSION [None]
  - FORMICATION [None]
  - HOT FLUSH [None]
  - INFLUENZA LIKE ILLNESS [None]
  - MOOD SWINGS [None]
  - SPEECH DISORDER [None]
  - SUICIDAL IDEATION [None]
